FAERS Safety Report 16861498 (Version 1)
Quarter: 2019Q3

REPORT INFORMATION
  Report Type: Report from Study
  Country: None (occurrence: CO)
  Receive Date: 20190927
  Receipt Date: 20190927
  Transmission Date: 20191005
  Serious: Yes (Other)
  Sender: FDA-Public Use
  Company Number: CO-ABBVIE-19K-036-2941555-00

PATIENT
  Sex: Female
  Weight: 60 kg

DRUGS (3)
  1. AZATHIOPRINE. [Concomitant]
     Active Substance: AZATHIOPRINE
     Indication: COLITIS ULCERATIVE
     Route: 048
  2. HUMIRA [Suspect]
     Active Substance: ADALIMUMAB
     Indication: COLITIS ULCERATIVE
     Route: 058
     Dates: start: 20180301
  3. URSACOL [Concomitant]
     Active Substance: URSODIOL
     Indication: COLITIS ULCERATIVE
     Route: 048

REACTIONS (1)
  - Benign ovarian tumour [Not Recovered/Not Resolved]

NARRATIVE: CASE EVENT DATE: 2019
